FAERS Safety Report 21920654 (Version 1)
Quarter: 2023Q1

REPORT INFORMATION
  Report Type: Spontaneous
  Country: US (occurrence: None)
  Receive Date: 20230127
  Receipt Date: 20230127
  Transmission Date: 20230418
  Serious: Yes (Other)
  Sender: FDA-Public Use
  Company Number: None

PATIENT
  Age: 54 Year
  Sex: Female
  Weight: 69.75 kg

DRUGS (9)
  1. ACETAMINOPHEN\DEXTROMETHORPHAN HYDROBROMIDE\DOXYLAMINE SUCCINATE [Suspect]
     Active Substance: ACETAMINOPHEN\DEXTROMETHORPHAN HYDROBROMIDE\DOXYLAMINE SUCCINATE
     Indication: Upper respiratory tract infection
     Dosage: OTHER QUANTITY : 1 30 ML;?FREQUENCY : EVERY 4 HOURS;?
     Route: 048
     Dates: start: 20230123, end: 20230125
  2. HCTZ, 25 mg [Concomitant]
  3. 1x a day Lisinopril, 10 mg [Concomitant]
  4. once a day Clonazapam, .5 mg [Concomitant]
  5. 2x a day Risperidone [Concomitant]
  6. .5 mg, once a day Breo Ellipta inhaler [Concomitant]
  7. 1 puff a day Albueterol rescue inhaler (as needed) [Concomitant]
  8. Melatonin, 5 mg a day [Concomitant]
  9. DAYTIME NON DROWSY [Suspect]
     Active Substance: ACETAMINOPHEN\DEXTROMETHORPHAN HYDROBROMIDE\PHENYLEPHRINE HYDROCHLORIDE

REACTIONS (2)
  - Hypersensitivity [None]
  - Product substitution issue [None]

NARRATIVE: CASE EVENT DATE: 20230125
